FAERS Safety Report 17822960 (Version 2)
Quarter: 2020Q2

REPORT INFORMATION
  Report Type: Spontaneous
  Country: US (occurrence: US)
  Receive Date: 20200526
  Receipt Date: 20200624
  Transmission Date: 20200714
  Serious: No
  Sender: FDA-Public Use
  Company Number: US-AMGEN INC.-USASP2020082030

PATIENT
  Age: 36 Year
  Sex: Female
  Weight: 90.25 kg

DRUGS (1)
  1. AIMOVIG [Suspect]
     Active Substance: ERENUMAB-AOOE
     Indication: MIGRAINE
     Dosage: 70 MILLIGRAM (UNSUCCESSFUL ATTEMPT)
     Route: 065
     Dates: start: 20200520

REACTIONS (4)
  - Injection site haemorrhage [Unknown]
  - Device defective [Unknown]
  - Accidental exposure to product [Unknown]
  - Device use error [Unknown]

NARRATIVE: CASE EVENT DATE: 20200520
